FAERS Safety Report 13574698 (Version 2)
Quarter: 2018Q3

REPORT INFORMATION
  Report Type: Report from Study
  Country: US (occurrence: US)
  Receive Date: 20170523
  Receipt Date: 20180830
  Transmission Date: 20181010
  Serious: Yes (Hospitalization)
  Sender: FDA-Public Use
  Company Number: US-ACTELION-A-US2016-147195

PATIENT
  Age: 74 Year
  Sex: Female
  Weight: 54.88 kg

DRUGS (23)
  1. ADEMPAS [Suspect]
     Active Substance: RIOCIGUAT
     Indication: PRODUCT USED FOR UNKNOWN INDICATION
     Route: 065
  2. XARELTO [Concomitant]
     Active Substance: RIVAROXABAN
  3. ADCIRCA [Concomitant]
     Active Substance: TADALAFIL
  4. UPTRAVI [Suspect]
     Active Substance: SELEXIPAG
     Dosage: UNK
     Route: 048
  5. METOPROLOL. [Concomitant]
     Active Substance: METOPROLOL
  6. ONGLYZA [Concomitant]
     Active Substance: SAXAGLIPTIN HYDROCHLORIDE
  7. OLOPATADINE. [Concomitant]
     Active Substance: OLOPATADINE
  8. OPSUMIT [Suspect]
     Active Substance: MACITENTAN
     Indication: PULMONARY ARTERIAL HYPERTENSION
     Dosage: 10 MG, QD
     Route: 048
     Dates: start: 20141219
  9. LISINOPRIL. [Concomitant]
     Active Substance: LISINOPRIL
  10. SPIRONOLACTONE. [Concomitant]
     Active Substance: SPIRONOLACTONE
  11. UPTRAVI [Suspect]
     Active Substance: SELEXIPAG
     Dosage: 400 MCG, BID
     Route: 048
     Dates: start: 20161125
  12. LORAZEPAM. [Concomitant]
     Active Substance: LORAZEPAM
  13. SILDENAFIL. [Concomitant]
     Active Substance: SILDENAFIL
  14. UPTRAVI [Suspect]
     Active Substance: SELEXIPAG
     Indication: PULMONARY ARTERIAL HYPERTENSION
     Dosage: 800 MCG, BID
     Route: 048
  15. TRAMADOL. [Concomitant]
     Active Substance: TRAMADOL
  16. FLUTICASONE. [Concomitant]
     Active Substance: FLUTICASONE
  17. SOTALOL. [Concomitant]
     Active Substance: SOTALOL
  18. ALLOPURINOL. [Concomitant]
     Active Substance: ALLOPURINOL
  19. FUROSEMIDE. [Concomitant]
     Active Substance: FUROSEMIDE
  20. UPTRAVI [Suspect]
     Active Substance: SELEXIPAG
     Dosage: 600 MCG, BID
     Route: 048
  21. LEVOTHYROXINE. [Concomitant]
     Active Substance: LEVOTHYROXINE
  22. KCL [Concomitant]
     Active Substance: POTASSIUM CHLORIDE
  23. VENTOLIN [Concomitant]
     Active Substance: ALBUTEROL SULFATE

REACTIONS (10)
  - Drug dose omission [Unknown]
  - Malaise [Unknown]
  - Dehydration [Unknown]
  - Adverse drug reaction [Recovered/Resolved]
  - Hyponatraemia [Unknown]
  - Dyspnoea [Unknown]
  - Animal bite [Unknown]
  - Headache [Recovering/Resolving]
  - Feeling abnormal [Unknown]
  - Diarrhoea [Unknown]

NARRATIVE: CASE EVENT DATE: 20170426
